FAERS Safety Report 7611288-8 (Version None)
Quarter: 2011Q3

REPORT INFORMATION
  Report Type: 
  Country: None (occurrence: None)
  Receive Date: 20110715
  Receipt Date: 20110705
  Transmission Date: 20111222
  Serious: Yes (Death)
  Sender: FDA-Public Use
  Company Number: BE-ABBOTT-11P-013-0836249-02

PATIENT
  Sex: Female

DRUGS (70)
  1. HUMIRA [Suspect]
     Indication: CROHN'S DISEASE
     Route: 058
     Dates: start: 20090925, end: 20090925
  2. IMURAN [Concomitant]
     Dates: start: 20110105, end: 20110204
  3. IMURAN [Concomitant]
     Dates: start: 20110226, end: 20110409
  4. ALPRAZOLAM [Concomitant]
     Indication: ANXIETY
     Dates: start: 20100501
  5. PERFUSALGAN [Concomitant]
     Dates: start: 20110404, end: 20110422
  6. LITICAN [Concomitant]
     Dosage: 50 MG/2 ML
     Dates: start: 20110207, end: 20110211
  7. TRAMADOL HCL [Concomitant]
     Indication: PAIN
     Dosage: 100 MG/2 ML
     Dates: start: 20101220, end: 20101222
  8. SOLUTIONS FOR PARENTERAL NUTRITION [Concomitant]
     Indication: MALNUTRITION
     Dates: start: 20101224, end: 20110102
  9. SPORANOX [Concomitant]
     Indication: VULVOVAGINAL MYCOTIC INFECTION
     Dates: start: 20110301, end: 20110308
  10. ENDRINE [Concomitant]
     Indication: PRODUCT USED FOR UNKNOWN INDICATION
     Dates: start: 20110408, end: 20110422
  11. SOLU-MEDROL [Concomitant]
     Indication: CROHN'S DISEASE
     Dates: start: 20110404, end: 20110410
  12. SOLU-MEDROL [Concomitant]
     Indication: ABSCESS INTESTINAL
     Dates: start: 20101229, end: 20110103
  13. TRAMADOL HCL [Concomitant]
     Indication: PAIN
     Dates: start: 20101224, end: 20101231
  14. TRAMADOL HCL [Concomitant]
     Dates: start: 20110101
  15. FORLAX [Concomitant]
     Indication: CONSTIPATION
     Dates: start: 20110216, end: 20110227
  16. SANDOSTATIN [Concomitant]
     Indication: GASTROINTESTINAL ANASTOMOTIC LEAK
     Dates: start: 20110429, end: 20110430
  17. HUMIRA [Suspect]
     Route: 058
     Dates: end: 20100315
  18. FRAXIPARINE [Concomitant]
     Indication: PROPHYLAXIS
     Dates: start: 20101223, end: 20110104
  19. FRAXIPARINE [Concomitant]
     Dates: start: 20110407, end: 20110513
  20. PIPERACILLIN AND TAZOBACTAM [Concomitant]
     Indication: ABSCESS
     Dates: start: 20110404, end: 20110505
  21. TRAMADOL HCL [Concomitant]
     Indication: PAIN
     Dates: start: 20101226, end: 20101230
  22. REMICADE [Concomitant]
     Indication: CROHN'S DISEASE
     Dates: start: 20101215, end: 20101215
  23. LEVOFLOXACIN [Concomitant]
     Indication: ABDOMINAL ABSCESS
     Dates: start: 20110317, end: 20110403
  24. LORAZEPAM [Concomitant]
     Indication: INSOMNIA
     Dates: start: 20110214, end: 20110415
  25. FLUCONAZOLE [Concomitant]
     Indication: VULVOVAGINAL MYCOTIC INFECTION
     Dates: start: 20110415, end: 20110509
  26. ENOXAPARIN SODIUM [Concomitant]
     Indication: PROPHYLAXIS
     Dates: start: 20110513, end: 20110603
  27. CO-BISOPROLOL [Concomitant]
     Indication: HYPERTENSION
     Dosage: 5/12.5 MG
     Dates: start: 20100301
  28. MEDROL [Concomitant]
     Indication: CROHN'S DISEASE
     Dates: start: 20100329, end: 20100401
  29. IMURAN [Concomitant]
     Indication: CROHN'S DISEASE
     Dates: start: 20100329, end: 20101221
  30. PIPERACILLIN AND TAZOBACTAM [Concomitant]
     Indication: LARGE INTESTINE PERFORATION
     Dates: start: 20101221, end: 20110103
  31. PIPERACILLIN AND TAZOBACTAM [Concomitant]
     Indication: ABDOMINAL ABSCESS
     Dates: start: 20110205, end: 20110316
  32. GEOMYCINE [Concomitant]
     Indication: COLONIC OBSTRUCTION
     Dates: start: 20110205, end: 20110214
  33. MICONAZOLE NITRATE [Concomitant]
     Indication: VULVOVAGINAL MYCOTIC INFECTION
     Dates: start: 20110227, end: 20110301
  34. AUGMENTIN '125' [Concomitant]
     Indication: INTESTINAL OBSTRUCTION
     Dates: start: 20110101, end: 20110204
  35. ACETAMINOPHEN [Concomitant]
     Indication: PAIN
     Dates: start: 20110101
  36. LYSOX [Concomitant]
     Indication: PRODUCTIVE COUGH
     Dates: start: 20110316, end: 20110317
  37. GLYCERIN [Concomitant]
     Indication: CONSTIPATION
     Dates: start: 20110226, end: 20110305
  38. MEDROL [Concomitant]
     Dates: start: 20110508, end: 20110513
  39. AZATHIOPRINE [Concomitant]
     Indication: CROHN'S DISEASE
  40. SOLU-MEDROL [Concomitant]
     Dates: start: 20110213, end: 20110316
  41. GEOMYCINE [Concomitant]
     Indication: ABSCESS
     Dates: start: 20101222, end: 20101224
  42. MEDROL [Concomitant]
     Dates: start: 20110521, end: 20110527
  43. IBUPROFEN [Concomitant]
     Indication: HEADACHE
     Dates: start: 20091201
  44. AVELOX [Concomitant]
     Indication: BRONCHITIS
     Dates: start: 20101101
  45. PERFUSALGAN [Concomitant]
     Indication: PAIN
     Dates: start: 20101222, end: 20110102
  46. TRAMADOL HCL [Concomitant]
     Dates: start: 20110207, end: 20110211
  47. TRAMADOL HCL [Concomitant]
     Dosage: 100 MG/2 ML
     Dates: start: 20101223, end: 20101225
  48. PANTOPRAZOLE [Concomitant]
     Indication: GASTRIC DISORDER
     Dates: start: 20110208
  49. LEVOFLOXACIN [Concomitant]
     Indication: LARGE INTESTINE PERFORATION
  50. IMODIUM [Concomitant]
     Indication: DIARRHOEA
     Dates: start: 20010223
  51. PERFUSALGAN [Concomitant]
     Dates: start: 20110205, end: 20110228
  52. LITICAN [Concomitant]
     Indication: NAUSEA
     Dates: start: 20101223, end: 20101230
  53. SOLUTIONS FOR PARENTERAL NUTRITION [Concomitant]
     Dates: start: 20110404
  54. LYSOMUCIL [Concomitant]
     Indication: PRODUCTIVE COUGH
     Dosage: 600MG/6ML
     Dates: start: 20101230, end: 20110101
  55. MOVIPREP [Concomitant]
     Indication: CONSTIPATION
     Dates: start: 20101218, end: 20101220
  56. PANTOPRAZOLE [Concomitant]
     Indication: PROPHYLAXIS
  57. TIBERAL [Concomitant]
     Indication: COLONIC OBSTRUCTION
     Dates: start: 20110317, end: 20110403
  58. VOLTAREN [Concomitant]
     Indication: PAIN
     Dates: start: 20110411, end: 20110421
  59. MEDROL [Concomitant]
     Dates: start: 20110514, end: 20110520
  60. HUMIRA [Suspect]
     Dosage: WEEK 2
     Route: 058
  61. ENTOCORT EC [Concomitant]
     Indication: CROHN'S DISEASE
     Dates: start: 20101130, end: 20101221
  62. SOLU-MEDROL [Concomitant]
     Indication: LARGE INTESTINE PERFORATION
     Dates: start: 20110208, end: 20110212
  63. GAVISCON [Concomitant]
     Indication: DYSPEPSIA
     Dates: start: 20101230, end: 20101230
  64. SOLUTIONS FOR PARENTERAL NUTRITION [Concomitant]
     Indication: CACHEXIA
     Dates: start: 20110208, end: 20110316
  65. LYSOMUCIL [Concomitant]
     Dosage: 600MG/6ML
     Dates: start: 20110315, end: 20110315
  66. KETEK [Concomitant]
     Indication: BRONCHITIS
     Dates: start: 20101220, end: 20101220
  67. VENOFER [Concomitant]
     Indication: IRON DEFICIENCY
     Dates: start: 20101215, end: 20101215
  68. SCOPOLAMINE [Concomitant]
     Indication: ABDOMINAL PAIN
     Dosage: 20 MG/1 ML
     Dates: start: 20110228, end: 20110228
  69. LASIX [Concomitant]
     Indication: OEDEMA PERIPHERAL
     Dates: start: 20110408, end: 20110410
  70. MEDROL [Concomitant]
     Dates: start: 20110410, end: 20110507

REACTIONS (1)
  - DEATH [None]
